FAERS Safety Report 8299872-2 (Version None)
Quarter: 2012Q2

REPORT INFORMATION
  Report Type: 
  Country: None (occurrence: None)
  Receive Date: 20120419
  Receipt Date: 20120329
  Transmission Date: 20120825
  Serious: Yes (Hospitalization)
  Sender: FDA-Public Use
  Company Number: NL-BAXTER-2012BAX002027

PATIENT
  Age: 62 Year
  Sex: Female

DRUGS (4)
  1. PHYSIONEAL 40 GLUCOSE 2.27% W/V / 22.7 MG/ML [Suspect]
  2. EXTRANEAL [Suspect]
     Route: 033
     Dates: start: 20070603
  3. EXTRANEAL [Suspect]
  4. PHYSIONEAL 40 GLUCOSE 2.27% W/V / 22.7 MG/ML [Suspect]
     Route: 033
     Dates: start: 20070603

REACTIONS (1)
  - PNEUMONIA [None]
